FAERS Safety Report 11272065 (Version 1)
Quarter: 2015Q2

REPORT INFORMATION
  Report Type: Spontaneous
  Country: US (occurrence: None)
  Receive Date: 20150625
  Receipt Date: 20150625
  Transmission Date: 20150821
  Serious: No
  Sender: FDA-Public Use
  Company Number: A-NJ2015-111385

PATIENT
  Age: 50 Year
  Sex: Male

DRUGS (5)
  1. VELETRI [Suspect]
     Active Substance: EPOPROSTENOL
     Dosage: 20 NG/KG, PER MIN
     Route: 042
  2. OPSUMIT [Suspect]
     Active Substance: MACITENTAN
     Route: 048
     Dates: start: 20150113
  3. WARFARIN [Concomitant]
     Active Substance: WARFARIN
  4. RIOCIGUAT (RIOCIGUAT) [Suspect]
     Active Substance: RIOCIGUAT
     Dates: start: 20141120
  5. TREPROSTINIL DIOLAMIN [Concomitant]
     Active Substance: TREPROSTINIL DIOLAMINE

REACTIONS (22)
  - Drug dose omission [None]
  - Device leakage [None]
  - Musculoskeletal pain [None]
  - Myalgia [None]
  - Flushing [None]
  - Pain in extremity [None]
  - Catheter placement [None]
  - Condition aggravated [None]
  - Syncope [None]
  - Alopecia [None]
  - Pain of skin [None]
  - Back pain [None]
  - Malaise [None]
  - Product physical issue [None]
  - Device alarm issue [None]
  - Cardiac flutter [None]
  - Headache [None]
  - Bone pain [None]
  - Thrombosis in device [None]
  - Fatigue [None]
  - Device occlusion [None]
  - Skin sensitisation [None]
